FAERS Safety Report 15458692 (Version 1)
Quarter: 2018Q4

REPORT INFORMATION
  Report Type: Spontaneous
  Country: US (occurrence: US)
  Receive Date: 20181003
  Receipt Date: 20181003
  Transmission Date: 20190204
  Serious: Yes (Death, Other)
  Sender: FDA-Public Use
  Company Number: US-ADAPT PHARMA-2018ADP00069

PATIENT
  Age: 36 Year
  Sex: Male

DRUGS (1)
  1. NALOXONE HYDROCHLORIDE. [Suspect]
     Active Substance: NALOXONE HYDROCHLORIDE
     Indication: OVERDOSE
     Dosage: 1 DOSE, TWICE
     Route: 065
     Dates: start: 20180828, end: 20180828

REACTIONS (4)
  - Ruptured cerebral aneurysm [Not Recovered/Not Resolved]
  - Blood pressure increased [Not Recovered/Not Resolved]
  - Death [Fatal]
  - Seizure [Not Recovered/Not Resolved]

NARRATIVE: CASE EVENT DATE: 20180828
